FAERS Safety Report 7328027-0 (Version None)
Quarter: 2011Q1

REPORT INFORMATION
  Report Type: 
  Country: None (occurrence: None)
  Receive Date: 20110217
  Receipt Date: 20110131
  Transmission Date: 20110831
  Serious: Yes (Other)
  Sender: FDA-Public Use
  Company Number: CRC-11-020

PATIENT
  Sex: Male
  Weight: 97.5 kg

DRUGS (10)
  1. PLAVIX [Concomitant]
  2. WARFARIN [Concomitant]
  3. AMIODARONE [Concomitant]
  4. LISINOPRIL [Concomitant]
  5. FOLIC ACID [Concomitant]
  6. PHENYTOIN [Suspect]
  7. OXYBUTYNIN [Concomitant]
  8. ISOSORIBIDE [Concomitant]
  9. SIMVASTATIN [Concomitant]
  10. DILANTIN [Suspect]
     Indication: CEREBROVASCULAR ACCIDENT
     Dosage: ORAL
     Route: 048

REACTIONS (6)
  - ARTERIAL DISORDER [None]
  - CONVULSION [None]
  - RENAL VESSEL DISORDER [None]
  - PRODUCT SUBSTITUTION ISSUE [None]
  - CEREBROVASCULAR ACCIDENT [None]
  - CORONARY ARTERY DISEASE [None]
